FAERS Safety Report 14401469 (Version 1)
Quarter: 2018Q1

REPORT INFORMATION
  Report Type: Spontaneous
  Country: US (occurrence: US)
  Receive Date: 20180117
  Receipt Date: 20180117
  Transmission Date: 20180509
  Serious: Yes (Other)
  Sender: FDA-Public Use
  Company Number: US-009507513-1801USA004445

PATIENT
  Age: 9 Year
  Sex: Male
  Weight: 23 kg

DRUGS (3)
  1. NOXAFIL [Suspect]
     Active Substance: POSACONAZOLE
     Indication: ASPERGILLUS INFECTION
     Dosage: 10 MG/KG DOSE EVERY 12 HOURS
     Route: 042
  2. MICAFUNGIN [Concomitant]
     Active Substance: MICAFUNGIN
     Indication: ASPERGILLUS INFECTION
     Dosage: UNK
  3. NOXAFIL [Suspect]
     Active Substance: POSACONAZOLE
     Dosage: 10 MG/KG/D
     Route: 042

REACTIONS (2)
  - Drug administered to patient of inappropriate age [Unknown]
  - Hypokalaemia [Unknown]
